FAERS Safety Report 26150849 (Version 1)
Quarter: 2025Q4

REPORT INFORMATION
  Report Type: Spontaneous
  Country: CA (occurrence: CA)
  Receive Date: 20251212
  Receipt Date: 20251212
  Transmission Date: 20260118
  Serious: Yes (Other)
  Sender: ACCORD
  Company Number: None

PATIENT
  Age: 52 Year
  Sex: Female

DRUGS (5)
  1. MYCOPHENOLATE MOFETIL [Suspect]
     Active Substance: MYCOPHENOLATE MOFETIL
     Indication: Systemic scleroderma
  2. TADALAFIL [Suspect]
     Active Substance: TADALAFIL
     Indication: Systemic scleroderma
  3. COLCHICINE [Suspect]
     Active Substance: COLCHICINE
     Indication: Systemic scleroderma
  4. PREDNISONE [Suspect]
     Active Substance: PREDNISONE
     Indication: Immunosuppression
  5. SEVELAMER [Suspect]
     Active Substance: SEVELAMER
     Indication: Systemic scleroderma

REACTIONS (2)
  - Treatment failure [Unknown]
  - Post procedural infection [Unknown]
